FAERS Safety Report 15298770 (Version 1)
Quarter: 2018Q3

REPORT INFORMATION
  Report Type: Other
  Country: HU (occurrence: HU)
  Receive Date: 20180820
  Receipt Date: 20180820
  Transmission Date: 20181010
  Serious: Yes (Other)
  Sender: FDA-Public Use
  Company Number: HU-MACLEODS PHARMACEUTICALS US LTD-MAC2018016371

PATIENT

DRUGS (1)
  1. LEVOFLOXACIN. [Suspect]
     Active Substance: LEVOFLOXACIN
     Indication: EVIDENCE BASED TREATMENT
     Route: 065

REACTIONS (4)
  - Hypotension [Unknown]
  - Anuria [Unknown]
  - Leukocytosis [Unknown]
  - General physical health deterioration [Unknown]
